FAERS Safety Report 9246924 (Version 1)
Quarter: 2013Q2

REPORT INFORMATION
  Report Type: Spontaneous
  Country: US (occurrence: US)
  Receive Date: 20130422
  Receipt Date: 20130422
  Transmission Date: 20140414
  Serious: No
  Sender: FDA-Public Use
  Company Number: US-ABBOTT-12P-163-1003929-00

PATIENT
  Age: 21 Year
  Sex: Female
  Weight: 85.81 kg

DRUGS (1)
  1. LUPRON DEPOT-PED [Suspect]
     Indication: ENDOMETRIOSIS
     Dates: start: 20121101

REACTIONS (2)
  - Medication error [Unknown]
  - Drug dispensing error [Unknown]
